FAERS Safety Report 8052395-8 (Version None)
Quarter: 2012Q1

REPORT INFORMATION
  Report Type: 
  Country: None (occurrence: None)
  Receive Date: 20120118
  Receipt Date: 20110628
  Transmission Date: 20120608
  Serious: Yes (Other)
  Sender: FDA-Public Use
  Company Number: ZA-UCBSA-048448

PATIENT
  Age: 15 Year
  Sex: Male

DRUGS (1)
  1. XYZAL [Suspect]
     Indication: RHINITIS ALLERGIC
     Dosage: DAILY DOSE: 5 MG, DOSE WAS INTURRUPTED AND THEN RE-STARTED
     Dates: end: 20110501

REACTIONS (2)
  - INJURY CORNEAL [None]
  - EYE IRRITATION [None]
